FAERS Safety Report 14730244 (Version 1)
Quarter: 2018Q2

REPORT INFORMATION
  Report Type: Spontaneous
  Country: US (occurrence: US)
  Receive Date: 20180402
  Receipt Date: 20180402
  Transmission Date: 20180711
  Serious: Yes (Hospitalization)
  Sender: FDA-Public Use
  Company Number: None

PATIENT
  Age: 69 Year
  Sex: Male
  Weight: 68.4 kg

DRUGS (2)
  1. NIVOLUMAB, 240 MG [Suspect]
     Active Substance: NIVOLUMAB
     Indication: SMALL CELL LUNG CANCER
     Route: 042
     Dates: start: 20171221, end: 20180315
  2. 177 LU -DOTAO-TYR3 OCTREOTATE [Suspect]
     Active Substance: LUTETIUM OXODOTREOTIDE LU-177
     Indication: SMALL CELL LUNG CANCER
     Route: 042
     Dates: start: 20180104, end: 20180301

REACTIONS (6)
  - Dyspnoea [None]
  - Dizziness [None]
  - Arrhythmia [None]
  - Head injury [None]
  - Productive cough [None]
  - Syncope [None]

NARRATIVE: CASE EVENT DATE: 20180329
